FAERS Safety Report 5166616-2 (Version None)
Quarter: 2006Q4

REPORT INFORMATION
  Report Type: 
  Country: None (occurrence: None)
  Receive Date: 20061207
  Receipt Date: 20061124
  Transmission Date: 20070319
  Serious: Yes (Hospitalization)
  Sender: FDA-Public Use
  Company Number: DEWYE643524NOV06

PATIENT
  Sex: Female
  Weight: 84 kg

DRUGS (4)
  1. ENBREL [Suspect]
     Indication: ANKYLOSING SPONDYLITIS
     Route: 058
     Dates: start: 20040727, end: 20061105
  2. ARTHROTEC FORTE [Suspect]
     Indication: ANKYLOSING SPONDYLITIS
     Dosage: 1 - 2 TBL. DAILY
     Route: 048
     Dates: start: 19970226
  3. VERAPAMIL [Concomitant]
     Indication: HYPERTENSION
     Dosage: 240 MG - 360 MG DAILY
     Route: 048
     Dates: start: 20030801
  4. RAMIPRIL [Concomitant]
     Indication: HYPERTENSION
     Dosage: 5 MG DAILY
     Route: 048
     Dates: start: 20050301

REACTIONS (2)
  - ABDOMINAL HAEMATOMA [None]
  - ANAEMIA [None]
